FAERS Safety Report 8887503 (Version 2)
Quarter: 2013Q2

REPORT INFORMATION
  Report Type: Spontaneous
  Country: FR (occurrence: None)
  Receive Date: 20121031
  Receipt Date: 20130603
  Transmission Date: 20140414
  Serious: Yes (Hospitalization)
  Sender: FDA-Public Use
  Company Number: FR-025517

PATIENT
  Age: 52 Year
  Sex: Female

DRUGS (4)
  1. ALKERAN [Suspect]
     Indication: ACUTE MYELOID LEUKAEMIA
     Dosage: 238 MILLIGRAM, (238 MILLIGRAM, 1 IN 1 DAYS), UNKNOWN
     Dates: start: 20110920, end: 20110920
  2. CYTARABINE [Suspect]
     Indication: ACUTE MYELOID LEUKAEMIA
     Dates: start: 20110719, end: 20110723
  3. MITOXANTRONE [Suspect]
     Indication: ACUTE MYELOID LEUKAEMIA
     Dates: start: 20110719, end: 20110720
  4. BUSULFAN [Suspect]
     Indication: ACUTE MYELOID LEUKAEMIA
     Dates: start: 20110916, end: 20110919

REACTIONS (7)
  - Sepsis [None]
  - Febrile bone marrow aplasia [None]
  - Transplant [None]
  - Proteus test positive [None]
  - Enterococcus test positive [None]
  - Streptococcus test positive [None]
  - Acute respiratory failure [None]
